FAERS Safety Report 8773075 (Version 1)
Quarter: 2012Q4

REPORT INFORMATION
  Report Type: 
  Country: BR (occurrence: BR)
  Receive Date: 20120907
  Receipt Date: 20120907
  Transmission Date: 20130627
  Serious: Yes (Hospitalization, Other)
  Sender: FDA-Public Use
  Company Number: PHHY2012BR075640

PATIENT
  Age: 18 Year
  Sex: Male

DRUGS (5)
  1. METHOTREXATE [Suspect]
     Indication: PROPHYLAXIS AGAINST GRAFT VERSUS HOST DISEASE
  2. CICLOSPORIN [Suspect]
     Indication: PROPHYLAXIS AGAINST GRAFT VERSUS HOST DISEASE
  3. BUSULFAN [Concomitant]
     Indication: SURGICAL PRECONDITIONING
  4. CYCLOPHOSPHAMIDE [Concomitant]
     Indication: SURGICAL PRECONDITIONING
  5. ANTITHYMOCYTE IMMUNOGLOBULIN [Concomitant]
     Indication: SURGICAL PRECONDITIONING

REACTIONS (8)
  - Chloroma [Recovered/Resolved]
  - Nausea [Unknown]
  - Vomiting [Unknown]
  - Decreased appetite [Unknown]
  - Gastric ulcer [Recovered/Resolved]
  - Chronic graft versus host disease in skin [Unknown]
  - Hepatic enzyme increased [Unknown]
  - Acute graft versus host disease in skin [Unknown]
